FAERS Safety Report 4604242-1 (Version None)
Quarter: 2005Q1

REPORT INFORMATION
  Report Type: 
  Country: None (occurrence: None)
  Receive Date: 20050308
  Receipt Date: 20050308
  Transmission Date: 20050727
  Serious: Yes (Death, Hospitalization)
  Sender: FDA-Public Use
  Company Number: None

PATIENT
  Age: 86 Year
  Sex: Female
  Weight: 81 kg

DRUGS (11)
  1. WARFARIN [Suspect]
     Indication: ATRIAL FIBRILLATION
     Dosage: 5 MG QD
  2. DIGOXIN [Concomitant]
  3. DILTIAZEM [Concomitant]
  4. ZESTRIL [Concomitant]
  5. ADVAIR DISKUS 100/50 [Concomitant]
  6. MULTI-VITAMIN [Concomitant]
  7. PRILOSEC [Concomitant]
  8. REGLAN [Concomitant]
  9. INSULIN [Concomitant]
  10. TYLENOL (CAPLET) [Concomitant]
  11. RENAGEL [Concomitant]

REACTIONS (5)
  - ABDOMINAL STRANGULATED HERNIA [None]
  - GASTROINTESTINAL HAEMORRHAGE [None]
  - HYPOTENSION [None]
  - RECTAL HAEMORRHAGE [None]
  - SEPSIS [None]
